FAERS Safety Report 19578468 (Version 1)
Quarter: 2021Q3

REPORT INFORMATION
  Report Type: Spontaneous
  Country: US (occurrence: US)
  Receive Date: 20210720
  Receipt Date: 20210720
  Transmission Date: 20211014
  Serious: Yes (Other)
  Sender: FDA-Public Use
  Company Number: US-DSJP-DSU-2021-122253

PATIENT
  Sex: Male

DRUGS (1)
  1. ENHERTU [Suspect]
     Active Substance: FAM-TRASTUZUMAB DERUXTECAN-NXKI
     Indication: OESOPHAGEAL CARCINOMA
     Dosage: 6.3 MG/KG
     Route: 042

REACTIONS (4)
  - Interstitial lung disease [Unknown]
  - Cough [Unknown]
  - Oxygen saturation decreased [Unknown]
  - Prescribed underdose [Unknown]
